FAERS Safety Report 8219023-X (Version None)
Quarter: 2012Q1

REPORT INFORMATION
  Report Type: 
  Country: None (occurrence: None)
  Receive Date: 20120307
  Receipt Date: 20111205
  Transmission Date: 20120608
  Serious: Yes (Other)
  Sender: FDA-Public Use
  Company Number: 163-21660-11100845

PATIENT
  Age: 54 Year
  Sex: Female
  Weight: 84.369 kg

DRUGS (7)
  1. SYNTHROID [Concomitant]
  2. LISINOPRIL [Concomitant]
  3. DICLOFENAC SODIUM [Concomitant]
  4. ABRAXANE [Suspect]
     Indication: BREAST CANCER
     Dosage: 260 MG/M2, Q 21 DAYS, IV, 220 MG/M2, Q 21 DAYS, IV
     Route: 042
     Dates: start: 20111018
  5. ABRAXANE [Suspect]
     Indication: BREAST CANCER
     Dosage: 260 MG/M2, Q 21 DAYS, IV, 220 MG/M2, Q 21 DAYS, IV
     Route: 042
     Dates: start: 20110927
  6. LEXAPRO [Concomitant]
  7. OMEPRAZOLE [Concomitant]

REACTIONS (2)
  - MYALGIA [None]
  - ARTHRALGIA [None]
